FAERS Safety Report 13643973 (Version 2)
Quarter: 2017Q2

REPORT INFORMATION
  Report Type: Spontaneous
  Country: US (occurrence: US)
  Receive Date: 20170612
  Receipt Date: 20170612
  Transmission Date: 20170830
  Serious: No
  Sender: FDA-Public Use
  Company Number: US-CARDINAL HEALTH 414, LLC-2021856

PATIENT
  Age: 71 Year
  Sex: Female

DRUGS (1)
  1. TECHNETIUM TC-99M SESTAMIBI KIT [Suspect]
     Active Substance: TECHNETIUM TC-99M SESTAMIBI
     Indication: IMAGING PROCEDURE
     Route: 042
     Dates: start: 20160707, end: 20160707

REACTIONS (4)
  - Blister [Recovered/Resolved]
  - Pruritus generalised [Recovered/Resolved]
  - Eye contusion [Recovered/Resolved]
  - Paraesthesia [Recovered/Resolved]

NARRATIVE: CASE EVENT DATE: 20160707
